FAERS Safety Report 16714696 (Version 4)
Quarter: 2019Q3

REPORT INFORMATION
  Report Type: Spontaneous
  Country: US (occurrence: US)
  Receive Date: 20190819
  Receipt Date: 20190923
  Transmission Date: 20191004
  Serious: No
  Sender: FDA-Public Use
  Company Number: US-AMGEN INC.-USASP2019131568

PATIENT
  Age: 26 Year
  Sex: Female

DRUGS (1)
  1. AIMOVIG [Suspect]
     Active Substance: ERENUMAB-AOOE
     Indication: PRODUCT USED FOR UNKNOWN INDICATION
     Dosage: 140 MILLIGRAM, QMO
     Route: 065
     Dates: start: 20190611

REACTIONS (3)
  - Accidental exposure to product [Unknown]
  - Incorrect dose administered by device [Unknown]
  - Device defective [Unknown]

NARRATIVE: CASE EVENT DATE: 20190814
